FAERS Safety Report 6370150-1 (Version None)
Quarter: 2009Q3

REPORT INFORMATION
  Report Type: 
  Country: None (occurrence: None)
  Receive Date: 20090923
  Receipt Date: 20070920
  Transmission Date: 20100115
  Serious: Yes (Other)
  Sender: FDA-Public Use
  Company Number: US-ASTRAZENECA-2006UW21667

PATIENT
  Age: 29629 Day
  Sex: Male
  Weight: 96.2 kg

DRUGS (6)
  1. SEROQUEL [Suspect]
     Indication: DEPRESSION
     Dosage: 25 MG - 100 MG
     Route: 048
     Dates: start: 20020118
  2. SEROQUEL [Suspect]
     Dosage: 125 MG TO 300 MG DAILY
     Route: 048
     Dates: start: 20020405
  3. RISPERDAL [Concomitant]
     Route: 048
     Dates: start: 19980101
  4. ZYPREXA [Concomitant]
     Route: 048
     Dates: start: 19980101, end: 20020101
  5. GLUCOTROL XL [Concomitant]
     Route: 048
     Dates: start: 20020422
  6. INSULIN [Concomitant]
     Dates: start: 20021204

REACTIONS (4)
  - DIABETES MELLITUS [None]
  - DIABETIC KETOACIDOSIS [None]
  - TYPE 1 DIABETES MELLITUS [None]
  - TYPE 2 DIABETES MELLITUS [None]
